FAERS Safety Report 6772231-7 (Version None)
Quarter: 2010Q2

REPORT INFORMATION
  Report Type: 
  Country: None (occurrence: None)
  Receive Date: 20100614
  Receipt Date: 20100603
  Transmission Date: 20101027
  Serious: Yes (Hospitalization)
  Sender: FDA-Public Use
  Company Number: VISP-NO-1006S-0288

PATIENT
  Age: 41 Year
  Sex: Male

DRUGS (2)
  1. VISIPAQUE [Suspect]
     Indication: POSTOPERATIVE CARE
     Dosage: 80 MG, SINGLE DOSE, I.V.
     Route: 042
     Dates: start: 20100530, end: 20100530
  2. METOPROLOL (BETALOC) [Concomitant]

REACTIONS (3)
  - CHILLS [None]
  - HYPERSENSITIVITY [None]
  - PYREXIA [None]
